FAERS Safety Report 9656595 (Version 1)
Quarter: 2013Q4

REPORT INFORMATION
  Report Type: Spontaneous
  Country: US (occurrence: US)
  Receive Date: 20131030
  Receipt Date: 20131030
  Transmission Date: 20140711
  Serious: No
  Sender: FDA-Public Use
  Company Number: US-GLAXOSMITHKLINE-A1026944A

PATIENT
  Age: 78 Year
  Sex: Female

DRUGS (7)
  1. SEREVENT [Suspect]
     Indication: ASTHMA
     Dosage: 1PUFF TWICE PER DAY
     Route: 055
     Dates: start: 20130606, end: 20130610
  2. LEVOTHYROXINE [Concomitant]
  3. ESTRADIOL [Concomitant]
  4. BABY ASPIRIN [Concomitant]
  5. CLARITIN [Concomitant]
  6. PRO-AIR [Concomitant]
  7. OXYGEN [Concomitant]

REACTIONS (5)
  - Muscle spasms [Recovering/Resolving]
  - Cough [Unknown]
  - Musculoskeletal pain [Unknown]
  - Throat irritation [Unknown]
  - Muscle disorder [Unknown]
